FAERS Safety Report 7299359-X (Version None)
Quarter: 2011Q1

REPORT INFORMATION
  Report Type: 
  Country: None (occurrence: None)
  Receive Date: 20110217
  Receipt Date: 20110211
  Transmission Date: 20110831
  Serious: Yes (Hospitalization)
  Sender: FDA-Public Use
  Company Number: A0913802A

PATIENT
  Age: 57 Year
  Sex: Male
  Weight: 76 kg

DRUGS (4)
  1. DEPAKENE [Suspect]
  2. EFFERVESCENT TABLET [Concomitant]
  3. ELTROXIN [Concomitant]
  4. PAZOPANIB [Suspect]
     Dosage: 800MG PER DAY
     Route: 048
     Dates: start: 20110113

REACTIONS (3)
  - LIPASE INCREASED [None]
  - BLOOD AMYLASE INCREASED [None]
  - ABDOMINAL PAIN [None]
